FAERS Safety Report 11666717 (Version 3)
Quarter: 2015Q4

REPORT INFORMATION
  Report Type: Report from Study
  Country: BR (occurrence: BR)
  Receive Date: 20151027
  Receipt Date: 20151125
  Transmission Date: 20160304
  Serious: Yes (Other)
  Sender: FDA-Public Use
  Company Number: PHHY2015BR138948

PATIENT
  Sex: Male
  Weight: 85 kg

DRUGS (1)
  1. EXJADE [Suspect]
     Active Substance: DEFERASIROX
     Indication: SERUM FERRITIN INCREASED
     Dosage: 2 DF, UNK
     Route: 051
     Dates: start: 201508

REACTIONS (4)
  - Graft versus host disease in skin [Unknown]
  - Blood creatinine increased [Unknown]
  - Wrong technique in product usage process [Unknown]
  - Incorrect route of drug administration [Unknown]
